FAERS Safety Report 6458883-X (Version None)
Quarter: 2009Q4

REPORT INFORMATION
  Report Type: 
  Country: None (occurrence: None)
  Receive Date: 20091127
  Receipt Date: 20091117
  Transmission Date: 20100525
  Serious: Yes (Hospitalization, Other)
  Sender: FDA-Public Use
  Company Number: DE-BAYER-200938680GPV

PATIENT
  Age: 40 Year
  Sex: Female

DRUGS (3)
  1. MIRENA [Suspect]
     Indication: DRUG USE FOR UNKNOWN INDICATION
     Route: 015
     Dates: start: 20050420, end: 20090930
  2. DUPHASTON [Concomitant]
     Indication: VAGINAL HAEMORRHAGE
     Dates: start: 20090429
  3. L-THYROXIN [Concomitant]
     Indication: DRUG USE FOR UNKNOWN INDICATION

REACTIONS (4)
  - FEMALE GENITAL TRACT FISTULA [None]
  - GENITAL HAEMORRHAGE [None]
  - INFLAMMATION [None]
  - PYOMETRA [None]
